FAERS Safety Report 6725143-9 (Version None)
Quarter: 2010Q2

REPORT INFORMATION
  Report Type: 
  Country: None (occurrence: None)
  Receive Date: 20100514
  Receipt Date: 20100422
  Transmission Date: 20101027
  Serious: Yes (Other)
  Sender: FDA-Public Use
  Company Number: US-ASTRAZENECA-2007UW11459

PATIENT
  Age: 18809 Day
  Sex: Female
  Weight: 93 kg

DRUGS (23)
  1. SEROQUEL [Suspect]
     Indication: BIPOLAR DISORDER
     Route: 048
     Dates: start: 20030301, end: 20060614
  2. SEROQUEL [Suspect]
     Indication: ANXIETY
     Route: 048
     Dates: start: 20030301, end: 20060614
  3. SEROQUEL [Suspect]
     Indication: DEPRESSION
     Route: 048
     Dates: start: 20030301, end: 20060614
  4. SEROQUEL [Suspect]
     Dosage: 100-200 MG
     Route: 048
     Dates: start: 20050602
  5. SEROQUEL [Suspect]
     Dosage: 100-200 MG
     Route: 048
     Dates: start: 20050602
  6. SEROQUEL [Suspect]
     Dosage: 100-200 MG
     Route: 048
     Dates: start: 20050602
  7. SEROQUEL [Suspect]
     Route: 048
     Dates: start: 20050223, end: 20060617
  8. SEROQUEL [Suspect]
     Route: 048
     Dates: start: 20050223, end: 20060617
  9. SEROQUEL [Suspect]
     Route: 048
     Dates: start: 20050223, end: 20060617
  10. DIAZEPAM [Concomitant]
     Dates: start: 20030801
  11. PREMARIN [Concomitant]
     Dates: start: 20031216
  12. PREMARIN [Concomitant]
     Dates: start: 20041217
  13. TRIMOX [Concomitant]
     Dates: start: 20040216
  14. BEXTRA [Concomitant]
     Dates: start: 20040625
  15. CARBAMAZEPINE [Concomitant]
     Dates: start: 20041201
  16. RISPERDAL [Concomitant]
     Dates: start: 20041201
  17. EFFEXOR XR [Concomitant]
     Dates: start: 20041201
  18. CITALOPRAM [Concomitant]
     Dates: start: 20041203
  19. TIZANIDINE HCL [Concomitant]
     Dates: start: 20050114
  20. ESTRADERM [Concomitant]
     Dates: start: 20050428
  21. FUROSEMIDE [Concomitant]
     Dates: start: 20050602
  22. HYDROCODONE BITARTRATE + ACETAMINOPHEN [Concomitant]
     Dosage: 10//325 MG
     Dates: start: 20050614
  23. DICYCLOMINE [Concomitant]
     Dates: start: 20050818

REACTIONS (3)
  - DIABETES MELLITUS INADEQUATE CONTROL [None]
  - DIABETIC NEUROPATHY [None]
  - METABOLIC SYNDROME [None]
